FAERS Safety Report 11357049 (Version 1)
Quarter: 2015Q3

REPORT INFORMATION
  Report Type: Spontaneous
  Country: US (occurrence: US)
  Receive Date: 20150803
  Receipt Date: 20150803
  Transmission Date: 20151125
  Serious: No
  Sender: FDA-Public Use
  Company Number: US-ELI_LILLY_AND_COMPANY-US201307004904

PATIENT
  Sex: Male

DRUGS (1)
  1. ZYPREXA [Suspect]
     Active Substance: OLANZAPINE
     Indication: ANXIETY
     Dosage: 20 MG, UNKNOWN
     Dates: start: 201306

REACTIONS (3)
  - Hallucination, auditory [Unknown]
  - Anxiety [Unknown]
  - Drug ineffective [Unknown]
